FAERS Safety Report 6270334-7 (Version None)
Quarter: 2009Q3

REPORT INFORMATION
  Report Type: 
  Country: None (occurrence: None)
  Receive Date: 20090716
  Receipt Date: 20090708
  Transmission Date: 20100115
  Serious: Yes (Hospitalization)
  Sender: FDA-Public Use
  Company Number: A0796958A

PATIENT
  Sex: Male

DRUGS (7)
  1. SERETIDE [Suspect]
     Dosage: 2PUFF TWICE PER DAY
     Route: 055
     Dates: start: 20090608
  2. TEGRETOL [Concomitant]
     Dosage: 20MG PER DAY
     Dates: start: 20090608
  3. BAMIFIX [Concomitant]
     Dosage: 1TAB TWICE PER DAY
     Route: 048
     Dates: start: 20090608
  4. ASPIRIN [Concomitant]
     Dosage: 100MG TWICE PER DAY
     Route: 048
     Dates: start: 20090608
  5. BALCOR [Concomitant]
     Dosage: 90MG THREE TIMES PER DAY
  6. LIPITOR [Concomitant]
  7. PREDNISONE TAB [Concomitant]
     Dosage: 10MG PER DAY
     Dates: end: 20090702

REACTIONS (2)
  - INFARCTION [None]
  - OVERDOSE [None]
